FAERS Safety Report 18410597 (Version 1)
Quarter: 2020Q4

REPORT INFORMATION
  Report Type: Spontaneous
  Country: PT (occurrence: PT)
  Receive Date: 20201021
  Receipt Date: 20201021
  Transmission Date: 20210114
  Serious: Yes (Other)
  Sender: FDA-Public Use
  Company Number: PT-BAYER-2020-223529

PATIENT
  Age: 52 Year
  Sex: Female
  Weight: 58 kg

DRUGS (1)
  1. ULTRAVIST [Suspect]
     Active Substance: IOPROMIDE
     Indication: COMPUTERISED TOMOGRAM
     Dosage: 46725 MG, ONCE
     Route: 042
     Dates: start: 20200929, end: 20200929

REACTIONS (6)
  - Contrast media reaction [Recovered/Resolved]
  - Muscle spasms [Recovered/Resolved]
  - Oesophageal pain [Recovered/Resolved]
  - Back pain [Recovered/Resolved]
  - Oesophageal discomfort [Recovered/Resolved]
  - Tremor [Recovered/Resolved]

NARRATIVE: CASE EVENT DATE: 20200929
